FAERS Safety Report 5563339-2 (Version None)
Quarter: 2007Q4

REPORT INFORMATION
  Report Type: 
  Country: None (occurrence: None)
  Receive Date: 20071212
  Receipt Date: 20071127
  Transmission Date: 20080405
  Serious: Yes (Other)
  Sender: FDA-Public Use
  Company Number: US021627

PATIENT
  Age: 61 Year
  Sex: Male
  Weight: 65.7716 kg

DRUGS (6)
  1. GABITRIL [Suspect]
     Indication: CONVULSION
     Dosage: 1 MG BID ORAL
     Route: 048
  2. GABITRIL [Suspect]
     Indication: CONVULSION
     Dosage: 2 MG BID ORAL
     Route: 048
     Dates: end: 20070715
  3. CLONAZEPAM [Concomitant]
  4. PROPRANOLOL [Concomitant]
  5. GUANABENZ [Concomitant]
  6. GABITRIL [Suspect]
     Indication: CONVULSION
     Dosage: 2 MG 1/2 TABLET QID ORAL
     Route: 048
     Dates: start: 20070716

REACTIONS (1)
  - CONVULSION [None]
